FAERS Safety Report 8574486 (Version 4)
Quarter: 2014Q4

REPORT INFORMATION
  Report Type: Report from Study
  Country: IT (occurrence: IT)
  Receive Date: 20120522
  Receipt Date: 20141028
  Transmission Date: 20150529
  Serious: Yes (Hospitalization)
  Sender: FDA-Public Use
  Company Number: PHHO2012IT007518

PATIENT
  Age: 64 Year
  Sex: Male
  Weight: 60 kg

DRUGS (3)
  1. PLACEBO [Suspect]
     Active Substance: UNSPECIFIED INGREDIENT
     Indication: PRIMARY PROGRESSIVE MULTIPLE SCLEROSIS
     Dosage: 1 DF, QD
     Route: 048
     Dates: start: 20101130, end: 20120517
  2. OXYCODONE HCL W/NALOXONE HCL [Concomitant]
     Indication: PAIN
     Dosage: 2 DF (CP), QD
  3. GABAPENTIN. [Suspect]
     Active Substance: GABAPENTIN
     Indication: PAIN
     Dosage: 400 MG, BID
     Route: 048

REACTIONS (1)
  - Cholecystitis acute [Recovering/Resolving]

NARRATIVE: CASE EVENT DATE: 20120513
